FAERS Safety Report 4423008-9 (Version None)
Quarter: 2004Q3

REPORT INFORMATION
  Report Type: 
  Country: None (occurrence: None)
  Receive Date: 20040805
  Receipt Date: 20040720
  Transmission Date: 20050211
  Serious: Yes (Hospitalization)
  Sender: FDA-Public Use
  Company Number: 201707

PATIENT
  Age: 40 Year
  Sex: Male
  Weight: 95.2554 kg

DRUGS (6)
  1. AVONEX [Suspect]
     Indication: MULTIPLE SCLEROSIS
     Dosage: 30 MCG QW IM
     Dates: start: 20031001
  2. LISINOPRIL [Concomitant]
  3. HYDROCHLOROTHIAZIDE [Concomitant]
  4. ASPIRIN [Concomitant]
  5. MEVACOR [Concomitant]
  6. NORTRIPTYLINE HCL [Concomitant]

REACTIONS (9)
  - BLOOD PRESSURE INCREASED [None]
  - FACIAL BONES FRACTURE [None]
  - HEAD INJURY [None]
  - HEADACHE [None]
  - JAW FRACTURE [None]
  - MEMORY IMPAIRMENT [None]
  - PHYSICAL ASSAULT [None]
  - THROMBOSIS [None]
  - VICTIM OF CRIME [None]
